FAERS Safety Report 9167404 (Version 4)
Quarter: 2013Q2

REPORT INFORMATION
  Report Type: Spontaneous
  Country: US (occurrence: US)
  Receive Date: 20130318
  Receipt Date: 20130403
  Transmission Date: 20140414
  Serious: Yes (Hospitalization)
  Sender: FDA-Public Use
  Company Number: US-JNJFOC-20130305579

PATIENT
  Sex: Male
  Weight: 81.65 kg

DRUGS (2)
  1. XARELTO [Suspect]
     Indication: ATRIAL FLUTTER
     Route: 048
  2. XARELTO [Suspect]
     Indication: ATRIAL TACHYCARDIA
     Route: 048

REACTIONS (2)
  - Melaena [Unknown]
  - Dyspnoea [Unknown]
